FAERS Safety Report 13077698 (Version 1)
Quarter: 2017Q1

REPORT INFORMATION
  Report Type: Other
  Country: US (occurrence: US)
  Receive Date: 20170101
  Receipt Date: 20170101
  Transmission Date: 20170428
  Serious: Yes (Death)
  Sender: FDA-Public Use
  Company Number: US-DEXPHARM-20162497

PATIENT
  Age: 26 Year
  Sex: Male

DRUGS (5)
  1. MIRTAZEPINE [Interacting]
     Active Substance: MIRTAZAPINE
  2. ALPRAZOLAM. [Concomitant]
     Active Substance: ALPRAZOLAM
  3. OMEPRAZOLE. [Suspect]
     Active Substance: OMEPRAZOLE
  4. DIPHENHYDRAMINE. [Concomitant]
     Active Substance: DIPHENHYDRAMINE
  5. LOPERAMIDE [Interacting]
     Active Substance: LOPERAMIDE

REACTIONS (2)
  - Drug interaction [Fatal]
  - Toxicity to various agents [Fatal]
